FAERS Safety Report 5136719-7 (Version None)
Quarter: 2006Q4

REPORT INFORMATION
  Report Type: 
  Country: None (occurrence: None)
  Receive Date: 20061023
  Receipt Date: 20061019
  Transmission Date: 20070319
  Serious: Yes (Hospitalization)
  Sender: FDA-Public Use
  Company Number: 2006-BP-12273RO

PATIENT
  Age: 35 Year
  Sex: Female

DRUGS (2)
  1. LITHIUM CARBONATE [Suspect]
     Indication: BIPOLAR DISORDER
     Dosage: 40 GM X 1 DOSE  (INT. OVERDOSE) PO
     Route: 048
  2. RISPERIDONE [Suspect]
     Indication: BIPOLAR DISORDER

REACTIONS (21)
  - ANTIPSYCHOTIC DRUG LEVEL INCREASED [None]
  - AREFLEXIA [None]
  - BLOOD CREATININE INCREASED [None]
  - CEREBELLAR SYNDROME [None]
  - CLONUS [None]
  - DIARRHOEA [None]
  - ELECTROENCEPHALOGRAM ABNORMAL [None]
  - HAEMODIALYSIS [None]
  - HAEMODYNAMIC INSTABILITY [None]
  - HYPERHIDROSIS [None]
  - HYPERREFLEXIA [None]
  - HYPOTONIA [None]
  - IIIRD NERVE DISORDER [None]
  - MULTI-ORGAN FAILURE [None]
  - NEUROLEPTIC MALIGNANT SYNDROME [None]
  - NOSOCOMIAL INFECTION [None]
  - RHABDOMYOLYSIS [None]
  - SUICIDE ATTEMPT [None]
  - TACHYCARDIA [None]
  - TACHYPNOEA [None]
  - VOMITING [None]
